FAERS Safety Report 11841358 (Version 3)
Quarter: 2016Q1

REPORT INFORMATION
  Report Type: Report from Study
  Country: IE (occurrence: IE)
  Receive Date: 20151216
  Receipt Date: 20160128
  Transmission Date: 20160526
  Serious: Yes (Hospitalization, Other)
  Sender: FDA-Public Use
  Company Number: IE-BIOGEN-2015BI148917

PATIENT
  Age: 47 Year
  Sex: Female
  Weight: 75.9 kg

DRUGS (6)
  1. MIRAPEXIN [Concomitant]
     Active Substance: PRAMIPEXOLE
     Indication: MULTIPLE SCLEROSIS
     Route: 058
     Dates: start: 2005
  2. TYSABRI [Suspect]
     Active Substance: NATALIZUMAB
     Indication: MULTIPLE SCLEROSIS
     Route: 042
     Dates: start: 20150109, end: 20151013
  3. BACLOFEN. [Concomitant]
     Active Substance: BACLOFEN
     Indication: MULTIPLE SCLEROSIS
     Route: 048
     Dates: start: 20100201
  4. TRAMADOL. [Concomitant]
     Active Substance: TRAMADOL
     Indication: MULTIPLE SCLEROSIS
     Route: 048
     Dates: start: 20040101
  5. VITAMIN D [Concomitant]
     Active Substance: CHOLECALCIFEROL
     Indication: SUPPLEMENTATION THERAPY
     Route: 048
     Dates: start: 20140101
  6. TRAMADOL. [Concomitant]
     Active Substance: TRAMADOL
     Indication: PAIN

REACTIONS (2)
  - Femoral neck fracture [Recovered/Resolved]
  - Road traffic accident [Recovered/Resolved]

NARRATIVE: CASE EVENT DATE: 20150615
